FAERS Safety Report 7639716-2 (Version None)
Quarter: 2011Q3

REPORT INFORMATION
  Report Type: 
  Country: None (occurrence: None)
  Receive Date: 20110727
  Receipt Date: 20110720
  Transmission Date: 20111222
  Serious: Yes (Other)
  Sender: FDA-Public Use
  Company Number: FR-PFIZER INC-2011165920

PATIENT
  Age: 72 Year
  Sex: Male

DRUGS (1)
  1. ALPROSTADIL [Suspect]
     Dosage: 5 UG, UNK
     Route: 017

REACTIONS (4)
  - ANGINA UNSTABLE [None]
  - HYPOTENSION [None]
  - MYOCARDIAL ISCHAEMIA [None]
  - PRESYNCOPE [None]
